FAERS Safety Report 4679116-0 (Version None)
Quarter: 2005Q2

REPORT INFORMATION
  Report Type: 
  Country: None (occurrence: None)
  Receive Date: 20050527
  Receipt Date: 20050221
  Transmission Date: 20051028
  Serious: No
  Sender: FDA-Public Use
  Company Number: PHEH2005US02254

PATIENT
  Age: 82 Year
  Sex: Male

DRUGS (8)
  1. ZELNORM [Suspect]
     Indication: OBSTRUCTION
     Dosage: 6 MG, QD, ORAL
     Route: 048
     Dates: start: 20050129
  2. DIOVAN [Concomitant]
  3. PREVACID [Concomitant]
  4. NEPHROX (ALUMINIUM HYDROXIDE) [Concomitant]
  5. AVANDIA [Concomitant]
  6. METOPROLOL TARTRATE [Concomitant]
  7. VITAMIN B12 [Concomitant]
  8. LEVOTHYROXINE SODIUM [Concomitant]

REACTIONS (2)
  - INSOMNIA [None]
  - TINNITUS [None]
